FAERS Safety Report 10899848 (Version 1)
Quarter: 2015Q1

REPORT INFORMATION
  Report Type: Spontaneous
  Country: US (occurrence: US)
  Receive Date: 20150310
  Receipt Date: 20150310
  Transmission Date: 20150721
  Serious: No
  Sender: FDA-Public Use
  Company Number: US-GLAXOSMITHKLINE-US2015022501

PATIENT
  Age: 29 Year
  Sex: Male

DRUGS (3)
  1. LORATADINE. [Concomitant]
     Active Substance: LORATADINE
  2. FLOVENT DISKUS [Suspect]
     Active Substance: FLUTICASONE PROPIONATE
     Indication: PNEUMONITIS
     Dosage: 2 PUFF(S), BID
     Route: 065
     Dates: start: 2014
  3. VENTOLIN HFA [Suspect]
     Active Substance: ALBUTEROL SULFATE
     Indication: BRONCHITIS
     Dosage: UNK, PRN
     Route: 065
     Dates: start: 2012

REACTIONS (7)
  - Seasonal allergy [Recovered/Resolved]
  - Cough [Recovered/Resolved]
  - Seasonal allergy [Not Recovered/Not Resolved]
  - Productive cough [Recovered/Resolved]
  - Bronchitis [Recovered/Resolved]
  - Dyspnoea [Recovering/Resolving]
  - Perennial allergy [Not Recovered/Not Resolved]

NARRATIVE: CASE EVENT DATE: 201412
